FAERS Safety Report 17458588 (Version 2)
Quarter: 2020Q2

REPORT INFORMATION
  Report Type: Spontaneous
  Country: US (occurrence: US)
  Receive Date: 20200225
  Receipt Date: 20200405
  Transmission Date: 20200713
  Serious: No
  Sender: FDA-Public Use
  Company Number: US-ASTRAZENECA-2020SE15872

PATIENT
  Sex: Female

DRUGS (1)
  1. SYMBICORT [Suspect]
     Active Substance: BUDESONIDE\FORMOTEROL FUMARATE DIHYDRATE
     Dosage: 160/4.5 MCG 120 INHALATIONS, TWO TIMES A DAY
     Route: 055

REACTIONS (6)
  - Device failure [Unknown]
  - Dyspnoea [Unknown]
  - Product dose omission [Unknown]
  - Drug ineffective [Unknown]
  - Device issue [Unknown]
  - Drug delivery system malfunction [Unknown]
